FAERS Safety Report 15436194 (Version 1)
Quarter: 2018Q3

REPORT INFORMATION
  Report Type: Spontaneous
  Country: NO (occurrence: NO)
  Receive Date: 20180927
  Receipt Date: 20180927
  Transmission Date: 20181010
  Serious: Yes (Hospitalization, Disabling)
  Sender: FDA-Public Use
  Company Number: NO-TEVA-2018-NO-959014

PATIENT
  Age: 63 Year
  Sex: Male

DRUGS (14)
  1. ESCITALOPRAM [Concomitant]
     Active Substance: ESCITALOPRAM OXALATE
     Route: 065
  2. ACETYLSALICYLIC ACID [Concomitant]
     Active Substance: ASPIRIN
     Route: 065
  3. ZOPICLONE [Concomitant]
     Active Substance: ZOPICLONE
     Route: 065
  4. SPIRONOLACTONE. [Concomitant]
     Active Substance: SPIRONOLACTONE
     Dosage: \
     Route: 065
  5. MIANSERIN [Concomitant]
     Active Substance: MIANSERIN
     Route: 065
  6. CLOPIDOGREL [Concomitant]
     Active Substance: CLOPIDOGREL BISULFATE
     Route: 065
  7. VESICARE [Concomitant]
     Active Substance: SOLIFENACIN SUCCINATE
     Route: 065
  8. RAMIPRIL. [Concomitant]
     Active Substance: RAMIPRIL
     Route: 065
  9. GABAPENTIN. [Suspect]
     Active Substance: GABAPENTIN
     Indication: NEURALGIA
     Dosage: 900 MILLIGRAM DAILY;
     Route: 065
     Dates: start: 20141105, end: 20170324
  10. AMARYL [Concomitant]
     Active Substance: GLIMEPIRIDE
     Route: 065
  11. MALFIN [Concomitant]
     Active Substance: MORPHINE SULFATE
     Route: 065
  12. FLAGYL [Suspect]
     Active Substance: METRONIDAZOLE\METRONIDAZOLE HYDROCHLORIDE
     Route: 065
  13. BISOPROLOL SANDOZ [Concomitant]
     Active Substance: BISOPROLOL
     Route: 065
  14. HIPREX [Concomitant]
     Active Substance: METHENAMINE HIPPURATE
     Route: 065

REACTIONS (18)
  - Muscle atrophy [Unknown]
  - Neck pain [Unknown]
  - Finger deformity [Unknown]
  - Myoclonus [Unknown]
  - Fatigue [Unknown]
  - Drug ineffective [Unknown]
  - Hypokinesia [Unknown]
  - Headache [Unknown]
  - Somnolence [Unknown]
  - Asthenia [Unknown]
  - Tremor [Unknown]
  - Mobility decreased [Unknown]
  - Back pain [Unknown]
  - Nerve injury [Unknown]
  - Pain in extremity [Not Recovered/Not Resolved]
  - Fluid retention [Unknown]
  - Amnesia [Unknown]
  - Condition aggravated [Unknown]

NARRATIVE: CASE EVENT DATE: 2014
